FAERS Safety Report 17511730 (Version 2)
Quarter: 2022Q2

REPORT INFORMATION
  Report Type: Report from Study
  Country: US (occurrence: US)
  Receive Date: 20200307
  Receipt Date: 20220504
  Transmission Date: 20220720
  Serious: Yes (Other)
  Sender: FDA-Public Use
  Company Number: US-TEVA-2020-US-1191325

PATIENT
  Age: 19 Year
  Sex: Female

DRUGS (1)
  1. CLARAVIS [Suspect]
     Active Substance: ISOTRETINOIN
     Route: 065
     Dates: start: 20200218

REACTIONS (10)
  - Insomnia [Unknown]
  - Gastric disorder [Unknown]
  - Constipation [Unknown]
  - Diarrhoea [Unknown]
  - Appetite disorder [Unknown]
  - Nausea [Unknown]
  - Pyrexia [Unknown]
  - Feeling hot [Unknown]
  - Erythema [Unknown]
  - Asthenia [Unknown]

NARRATIVE: CASE EVENT DATE: 20200201
